FAERS Safety Report 25858854 (Version 1)
Quarter: 2025Q3

REPORT INFORMATION
  Report Type: Spontaneous
  Country: US (occurrence: None)
  Receive Date: 20250927
  Receipt Date: 20250927
  Transmission Date: 20251021
  Serious: Yes (Hospitalization)
  Sender: FDA-CTU
  Company Number: None

PATIENT
  Age: 75 Year
  Sex: Male
  Weight: 63 kg

DRUGS (1)
  1. TICE BCG [Suspect]
     Active Substance: BACILLUS CALMETTE-GUERIN SUBSTRAIN TICE LIVE ANTIGEN
     Dates: end: 20250617

REACTIONS (15)
  - Failure to thrive [None]
  - Fatigue [None]
  - Weight decreased [None]
  - Dysuria [None]
  - Nausea [None]
  - Vomiting [None]
  - Abdominal pain [None]
  - Decreased appetite [None]
  - Balance disorder [None]
  - Bladder dilatation [None]
  - Hyponatraemia [None]
  - Liver function test increased [None]
  - Urinary tract infection [None]
  - Staphylococcus test positive [None]
  - Biopsy stomach abnormal [None]

NARRATIVE: CASE EVENT DATE: 20250708
